FAERS Safety Report 7865306-2 (Version None)
Quarter: 2011Q4

REPORT INFORMATION
  Report Type: 
  Country: None (occurrence: None)
  Receive Date: 20111028
  Receipt Date: 20101119
  Transmission Date: 20120403
  Serious: No
  Sender: FDA-Public Use
  Company Number: US-GLAXOSMITHKLINE-A0894280A

PATIENT
  Sex: Female

DRUGS (10)
  1. ATIVAN [Concomitant]
  2. COREG [Concomitant]
  3. SPIRONOLACTONE [Concomitant]
  4. FUROSEMIDE [Concomitant]
  5. LEVOTHYROXINE SODIUM [Concomitant]
  6. COMBIVENT [Concomitant]
  7. MINITRAN [Concomitant]
  8. ASPIRIN [Concomitant]
  9. ADVAIR DISKUS 100/50 [Suspect]
     Indication: CHRONIC OBSTRUCTIVE PULMONARY DISEASE
     Dosage: 1PUFF TWICE PER DAY
     Route: 055
  10. POTASSIUM [Concomitant]

REACTIONS (3)
  - INHALATION THERAPY [None]
  - DYSPNOEA [None]
  - PRODUCT QUALITY ISSUE [None]
